FAERS Safety Report 9334265 (Version 3)
Quarter: 2013Q3

REPORT INFORMATION
  Report Type: Spontaneous
  Country: US (occurrence: US)
  Receive Date: 20130606
  Receipt Date: 20130920
  Transmission Date: 20140515
  Serious: Yes (Other)
  Sender: FDA-Public Use
  Company Number: US-AMGEN-USASP2013013805

PATIENT
  Age: 88 Year
  Sex: Female
  Weight: 52.16 kg

DRUGS (6)
  1. PROLIA [Suspect]
     Indication: OSTEOPOROSIS POSTMENOPAUSAL
     Dosage: UNK, Q6MO
     Route: 058
     Dates: start: 20110202
  2. PROLIA [Suspect]
     Dosage: UNK, Q6MO
     Route: 058
     Dates: start: 20120807
  3. PROLIA [Suspect]
     Dosage: UNK, Q6MO
     Route: 058
     Dates: start: 20130218
  4. CALCIUM WITH VITAMIN D             /00944201/ [Concomitant]
     Dosage: 600 MG, BID
  5. FOSAMAX [Concomitant]
     Dosage: 70 MG, QWK
     Route: 048
     Dates: start: 20091112
  6. CALTRATE                           /00944201/ [Concomitant]
     Dosage: UNK UNK, BID
     Route: 048

REACTIONS (5)
  - Squamous cell carcinoma [Unknown]
  - Injection site rash [Recovered/Resolved]
  - Injection site erythema [Not Recovered/Not Resolved]
  - Rash [Recovered/Resolved]
  - Nasopharyngitis [Not Recovered/Not Resolved]
